FAERS Safety Report 14118465 (Version 1)
Quarter: 2017Q4

REPORT INFORMATION
  Report Type: Report from Study
  Country: US (occurrence: US)
  Receive Date: 20171023
  Receipt Date: 20171023
  Transmission Date: 20180321
  Serious: No
  Sender: FDA-Public Use
  Company Number: PHEH2017US033813

PATIENT
  Sex: Male

DRUGS (1)
  1. ENTRESTO [Suspect]
     Active Substance: SACUBITRIL\VALSARTAN
     Indication: CARDIAC FAILURE CHRONIC
     Dosage: 1 DF (24 MG SACUBITRIL/26 MGA VALSARTAN), BID
     Route: 048

REACTIONS (4)
  - Cough [Recovered/Resolved]
  - Drug prescribing error [Unknown]
  - Prescribed underdose [Unknown]
  - Wrong technique in product usage process [Unknown]
